FAERS Safety Report 15613256 (Version 2)
Quarter: 2018Q4

REPORT INFORMATION
  Report Type: Spontaneous
  Country: US (occurrence: US)
  Receive Date: 20181113
  Receipt Date: 20181116
  Transmission Date: 20190205
  Serious: Yes (Other)
  Sender: FDA-Public Use
  Company Number: US-PFIZER INC-2018460016

PATIENT
  Age: 36 Year
  Sex: Female

DRUGS (2)
  1. NEURONTIN [Suspect]
     Active Substance: GABAPENTIN
     Dosage: 5 DF, UNK (PILLS)
  2. HEROIN [Suspect]
     Active Substance: DIAMORPHINE
     Dosage: 0.2 G, UNK

REACTIONS (2)
  - Crime [Unknown]
  - Drug abuse [Unknown]
